FAERS Safety Report 7071707-5 (Version None)
Quarter: 2010Q4

REPORT INFORMATION
  Report Type: 
  Country: None (occurrence: None)
  Receive Date: 20101029
  Receipt Date: 20091012
  Transmission Date: 20110411
  Serious: No
  Sender: FDA-Public Use
  Company Number: A0811390A

PATIENT
  Age: 52 Year
  Sex: Female

DRUGS (8)
  1. ADVAIR DISKUS 100/50 [Suspect]
     Indication: ASTHMA
     Dosage: 1PUFF TWICE PER DAY
     Route: 055
     Dates: start: 20070101, end: 20090901
  2. ALBUTEROL [Concomitant]
  3. VITAMIN E [Concomitant]
  4. ASCORBIC ACID [Concomitant]
  5. CALCIUM [Concomitant]
  6. VEGETABLE EXTRACT [Concomitant]
  7. VITAMIN B-12 [Concomitant]
  8. VITAMIN B-12 [Concomitant]

REACTIONS (1)
  - ECZEMA [None]
